FAERS Safety Report 12474781 (Version 1)
Quarter: 2016Q2

REPORT INFORMATION
  Report Type: Spontaneous
  Country: FR (occurrence: FR)
  Receive Date: 20160617
  Receipt Date: 20160617
  Transmission Date: 20160815
  Serious: Yes (Hospitalization)
  Sender: FDA-Public Use
  Company Number: FR-ROCHE-1774714

PATIENT
  Age: 49 Year
  Sex: Female

DRUGS (15)
  1. VALIUM [Suspect]
     Active Substance: DIAZEPAM
     Indication: PRODUCT USED FOR UNKNOWN INDICATION
     Route: 048
     Dates: start: 20160427
  2. ZOPICLONE [Concomitant]
     Active Substance: ZOPICLONE
     Dosage: ZOPICLONE 7.5
     Route: 065
  3. SELINCRO [Concomitant]
     Active Substance: NALMEFENE HYDROCHLORIDE DIHYDRATE
  4. KEPPRA [Concomitant]
     Active Substance: LEVETIRACETAM
  5. THERALENE (FRANCE) [Concomitant]
     Active Substance: TRIMEPRAZINE
     Route: 065
  6. BACLOFENE [Suspect]
     Active Substance: BACLOFEN
     Indication: PRODUCT USED FOR UNKNOWN INDICATION
     Route: 048
     Dates: start: 20160427
  7. CYMBALTA [Concomitant]
     Active Substance: DULOXETINE HYDROCHLORIDE
     Route: 065
  8. VENLAFAXINE [Suspect]
     Active Substance: VENLAFAXINE HYDROCHLORIDE
     Indication: PRODUCT USED FOR UNKNOWN INDICATION
     Route: 048
     Dates: start: 20160427
  9. LOXAPAC [Concomitant]
     Active Substance: LOXAPINE SUCCINATE
  10. DEPAKINE [Concomitant]
     Active Substance: VALPROATE SODIUM
  11. ABILIFY [Suspect]
     Active Substance: ARIPIPRAZOLE
     Indication: PRODUCT USED FOR UNKNOWN INDICATION
     Route: 048
     Dates: start: 20160427
  12. AVLOCARDYL [Concomitant]
     Active Substance: PROPRANOLOL HYDROCHLORIDE
  13. SECTRAL [Concomitant]
     Active Substance: ACEBUTOLOL HYDROCHLORIDE
     Dosage: SECTRAL 50
     Route: 065
  14. BEVITINE [Concomitant]
     Active Substance: THIAMINE
     Route: 065
  15. IMOVANE [Concomitant]
     Active Substance: ZOPICLONE
     Dosage: IMOVANE 7.5
     Route: 065

REACTIONS (7)
  - Bradypnoea [Recovered/Resolved]
  - Suicide attempt [Recovered/Resolved]
  - Miosis [Recovered/Resolved]
  - Coma [Recovered/Resolved]
  - Hypothermia [Recovered/Resolved]
  - Bradycardia [Recovered/Resolved]
  - Electrocardiogram QT prolonged [Recovered/Resolved]

NARRATIVE: CASE EVENT DATE: 20160427
